FAERS Safety Report 6682924-8 (Version None)
Quarter: 2010Q2

REPORT INFORMATION
  Report Type: 
  Country: None (occurrence: None)
  Receive Date: 20100415
  Receipt Date: 20100407
  Transmission Date: 20101027
  Serious: Yes (Other)
  Sender: FDA-Public Use
  Company Number: D0067123A

PATIENT
  Age: 69 Year
  Sex: Female

DRUGS (1)
  1. VIANI [Suspect]
     Route: 055

REACTIONS (3)
  - ASTHENIA [None]
  - CEREBRAL HAEMORRHAGE [None]
  - MUSCULAR WEAKNESS [None]
